FAERS Safety Report 13774377 (Version 3)
Quarter: 2017Q3

REPORT INFORMATION
  Report Type: Spontaneous
  Country: US (occurrence: US)
  Receive Date: 20170720
  Receipt Date: 20170920
  Transmission Date: 20171127
  Serious: No
  Sender: FDA-Public Use
  Company Number: US-RECKITT BENCKISER HEALTHCARE INT LIMITED-RB-92895-2016

PATIENT
  Sex: Female

DRUGS (1)
  1. MUCINEX [Suspect]
     Active Substance: GUAIFENESIN
     Indication: VIRAL UPPER RESPIRATORY TRACT INFECTION
     Dosage: UNK, EVERY MORNING AND NIGHT AS THE INSTRUCTIONS SAID
     Route: 065

REACTIONS (3)
  - Condition aggravated [Unknown]
  - Insomnia [Unknown]
  - Dyspnoea [Unknown]
